FAERS Safety Report 6208449-1 (Version None)
Quarter: 2009Q2

REPORT INFORMATION
  Report Type: 
  Country: None (occurrence: None)
  Receive Date: 20090522
  Receipt Date: 20090130
  Transmission Date: 20091009
  Serious: No
  Sender: FDA-Public Use
  Company Number: 8042109

PATIENT
  Age: 55 Year
  Sex: Female
  Weight: 65.7 kg

DRUGS (7)
  1. CIMZIA [Suspect]
     Indication: CROHN'S DISEASE
     Dosage: 400 MG SC
     Route: 058
     Dates: start: 20081013
  2. COUMADIN [Concomitant]
  3. ENTOCORT EC [Concomitant]
  4. AZASAN [Concomitant]
  5. CENOVIS MEGA CALCIUM PLUS D [Concomitant]
  6. MULTI-VITAMIN [Concomitant]
  7. ASCORBIC ACID [Concomitant]

REACTIONS (1)
  - ALOPECIA [None]
